FAERS Safety Report 15412535 (Version 1)
Quarter: 2018Q3

REPORT INFORMATION
  Report Type: Report from Study
  Country: None (occurrence: IT)
  Receive Date: 20180921
  Receipt Date: 20180921
  Transmission Date: 20181010
  Serious: Yes (Hospitalization)
  Sender: FDA-Public Use
  Company Number: IT-ABBVIE-18S-083-2491014-00

PATIENT
  Age: 73 Year
  Sex: Male

DRUGS (1)
  1. DUODOPA [Suspect]
     Active Substance: CARBIDOPA\LEVODOPA
     Indication: PARKINSON^S DISEASE
     Dosage: MD: 4,5+3 CR: 2,2 ED: 1,7
     Route: 050
     Dates: start: 20170306

REACTIONS (1)
  - Urinary bladder polyp [Recovered/Resolved]

NARRATIVE: CASE EVENT DATE: 201809
